FAERS Safety Report 5431889-5 (Version None)
Quarter: 2007Q3

REPORT INFORMATION
  Report Type: 
  Country: None (occurrence: None)
  Receive Date: 20070830
  Receipt Date: 20070821
  Transmission Date: 20080115
  Serious: Yes (Life-Threatening, Hospitalization)
  Sender: FDA-Public Use
  Company Number: US-TYCO HEALTHCARE/MALLINCKRODT-T200700922

PATIENT

DRUGS (10)
  1. ULTRA-TECHNEKOW DTE GENERATOR [Suspect]
     Indication: RADIOISOTOPE SCAN
     Dosage: 26.4 MCI, SINGLE
     Route: 042
     Dates: start: 20070305, end: 20070305
  2. MYOVIEW                            /01238501/ [Suspect]
     Indication: RADIOISOTOPE SCAN
     Dosage: UNK, SINGLE
     Route: 042
     Dates: start: 20070305, end: 20070305
  3. THALLIUM (201 TL) [Suspect]
     Indication: RADIOISOTOPE SCAN
     Dosage: 3.7 MCI, SINGLE
     Route: 042
     Dates: start: 20070305, end: 20070305
  4. INSULIN [Concomitant]
     Indication: DIABETES MELLITUS
     Route: 058
  5. NEURONTIN [Concomitant]
     Indication: NEUROPATHY
     Dosage: 300 MG, QID
     Route: 048
  6. LASIX [Concomitant]
     Indication: CARDIAC FAILURE CONGESTIVE
     Dosage: 80 MG, THREE TABS TID
     Route: 048
  7. COREG [Concomitant]
     Indication: CARDIAC FAILURE CONGESTIVE
     Dosage: 6.25 MG, TID
     Route: 048
  8. SPIRONOLACTONE [Concomitant]
     Indication: CARDIAC FAILURE CONGESTIVE
     Dosage: 25 MG, THREE TABS BID
     Route: 048
  9. KLOR-CON [Concomitant]
     Indication: BLOOD POTASSIUM DECREASED
     Dosage: 10 MG, QD
     Route: 048
  10. LIPITOR [Concomitant]
     Indication: CARDIAC DISORDER
     Dosage: UNK, QD
     Route: 048

REACTIONS (4)
  - BLOOD POTASSIUM INCREASED [None]
  - CARDIAC ARREST [None]
  - CHEST PAIN [None]
  - VAGINAL HAEMORRHAGE [None]
